FAERS Safety Report 13737667 (Version 1)
Quarter: 2017Q3

REPORT INFORMATION
  Report Type: Report from Study
  Country: US (occurrence: US)
  Receive Date: 20170710
  Receipt Date: 20170710
  Transmission Date: 20171127
  Serious: No
  Sender: FDA-Public Use
  Company Number: US-SAOL THERAPEUTICS-2016SAO00297

PATIENT
  Age: 59 Year
  Sex: Female

DRUGS (1)
  1. COMPOUNDED BACLOFEN [Suspect]
     Active Substance: BACLOFEN
     Indication: PAIN
     Route: 037

REACTIONS (2)
  - Off label use [Unknown]
  - Medical device site pain [Recovered/Resolved]

NARRATIVE: CASE EVENT DATE: 20150820
